FAERS Safety Report 19522994 (Version 1)
Quarter: 2021Q3

REPORT INFORMATION
  Report Type: Spontaneous
  Country: US (occurrence: US)
  Receive Date: 20210712
  Receipt Date: 20210712
  Transmission Date: 20211014
  Serious: No
  Sender: FDA-Public Use
  Company Number: US-ALKERMES INC.-ALK-2021-003455

PATIENT
  Sex: Male
  Weight: 63.49 kg

DRUGS (2)
  1. VIVITROL [Suspect]
     Active Substance: NALTREXONE
     Dosage: 380 MILLIGRAM, QMO
     Route: 030
  2. VIVITROL [Suspect]
     Active Substance: NALTREXONE
     Indication: DRUG DEPENDENCE
     Dosage: 380 MILLIGRAM, QMO
     Route: 030

REACTIONS (6)
  - Needle track marks [Not Recovered/Not Resolved]
  - Fear of injection [Unknown]
  - Needle issue [Not Recovered/Not Resolved]
  - Injection site reaction [Unknown]
  - Injection site discomfort [Unknown]
  - Injection site pain [Unknown]
